FAERS Safety Report 13873168 (Version 1)
Quarter: 2017Q3

REPORT INFORMATION
  Report Type: Spontaneous
  Country: BR (occurrence: BR)
  Receive Date: 20170816
  Receipt Date: 20170816
  Transmission Date: 20171127
  Serious: Yes (Other)
  Sender: FDA-Public Use
  Company Number: PHHY2017BR119766

PATIENT
  Age: 32 Year
  Sex: Female

DRUGS (2)
  1. OCTREOTIDE WITH POLY(D L-LACTIDE-CO-GLYCOLIDE ) [Suspect]
     Active Substance: OCTREOTIDE ACETATE
     Indication: CARCINOID SYNDROME
     Dosage: 20 MG, QMO (EACH 28 DAYS)
     Route: 065
  2. OCTREOTIDE. [Suspect]
     Active Substance: OCTREOTIDE
     Indication: CARCINOID SYNDROME
     Dosage: 0.1 MG, Q12H (EVERY 12 HOURS)
     Route: 058

REACTIONS (4)
  - Steatorrhoea [Unknown]
  - Skin mass [Unknown]
  - Metastases to skin [Unknown]
  - Malignant neoplasm progression [Unknown]
